FAERS Safety Report 7267160-9 (Version None)
Quarter: 2011Q1

REPORT INFORMATION
  Report Type: 
  Country: None (occurrence: None)
  Receive Date: 20110201
  Receipt Date: 20110128
  Transmission Date: 20110831
  Serious: Yes (Hospitalization)
  Sender: FDA-Public Use
  Company Number: HR-ABBOTT-11P-216-0701496-00

PATIENT
  Age: 27 Year
  Sex: Female

DRUGS (8)
  1. VITAMIN D [Concomitant]
     Indication: PRODUCT USED FOR UNKNOWN INDICATION
  2. HUMIRA [Suspect]
     Indication: JUVENILE ARTHRITIS
     Route: 058
     Dates: start: 20100901, end: 20110114
  3. BONVIVA [Concomitant]
     Indication: OSTEOPOROSIS
  4. MEDROL [Concomitant]
     Indication: JUVENILE ARTHRITIS
  5. CALCIUM SUPPLEMENT [Concomitant]
     Indication: PRODUCT USED FOR UNKNOWN INDICATION
  6. ARAVA [Concomitant]
     Indication: JUVENILE ARTHRITIS
     Route: 048
     Dates: end: 20110114
  7. VOLTAREN [Concomitant]
     Indication: JUVENILE ARTHRITIS
     Dosage: 1-2 TABLETS
  8. DICLO [Concomitant]
     Indication: JUVENILE ARTHRITIS
     Dosage: 2 TO 3 TIMES A DAY
     Route: 061

REACTIONS (8)
  - ARTHRALGIA [None]
  - JOINT SWELLING [None]
  - CHILLS [None]
  - PYREXIA [None]
  - MUSCULOSKELETAL STIFFNESS [None]
  - MALAISE [None]
  - VOMITING [None]
  - DRUG INEFFECTIVE [None]
